FAERS Safety Report 4297957-9 (Version None)
Quarter: 2004Q1

REPORT INFORMATION
  Report Type: 
  Country: None (occurrence: None)
  Receive Date: 20040218
  Receipt Date: 20001207
  Transmission Date: 20041129
  Serious: Yes (Hospitalization, Other)
  Sender: FDA-Public Use
  Company Number: US-BRISTOL-MYERS SQUIBB COMPANY-10636884

PATIENT
  Age: 46 Year
  Sex: Male

DRUGS (2)
  1. STADOL [Suspect]
     Indication: PAIN
     Route: 045
     Dates: start: 19930101, end: 19990823
  2. STADOL [Suspect]
     Indication: MIGRAINE
     Route: 045
     Dates: start: 19930101, end: 19990823

REACTIONS (1)
  - DEPENDENCE [None]
